FAERS Safety Report 9754082 (Version 1)
Quarter: 2013Q4

REPORT INFORMATION
  Report Type: Spontaneous
  Country: US (occurrence: US)
  Receive Date: 20131213
  Receipt Date: 20131213
  Transmission Date: 20140711
  Serious: No
  Sender: FDA-Public Use
  Company Number: US-GLAXOSMITHKLINE-A1016675A

PATIENT
  Age: 34 Year
  Sex: Male

DRUGS (1)
  1. NICORETTE NICOTINE POLACRILEX MINT LOZENGE, 4MG [Suspect]
     Indication: TOBACCO USER
     Dates: start: 20130311, end: 20130313

REACTIONS (3)
  - Dry mouth [Recovered/Resolved]
  - Headache [Recovered/Resolved]
  - Drug administration error [Recovered/Resolved]
